FAERS Safety Report 9192789 (Version 1)
Quarter: 2013Q1

REPORT INFORMATION
  Report Type: Spontaneous
  Country: None (occurrence: None)
  Receive Date: 20130325
  Receipt Date: 20130325
  Transmission Date: 20140127
  Serious: No
  Sender: FDA-Public Use
  Company Number: None

PATIENT
  Sex: Female
  Weight: 69 kg

DRUGS (2)
  1. PACLITAXEL (TAXOL) [Suspect]
     Dates: start: 20110919
  2. TOPOTECAN [Suspect]

REACTIONS (2)
  - Neutropenia [None]
  - Leukopenia [None]
